FAERS Safety Report 4954233-6 (Version None)
Quarter: 2006Q1

REPORT INFORMATION
  Report Type: 
  Country: None (occurrence: None)
  Receive Date: 20060327
  Receipt Date: 20060313
  Transmission Date: 20060701
  Serious: Yes (Hospitalization)
  Sender: FDA-Public Use
  Company Number: FI-BRISTOL-MYERS SQUIBB COMPANY-13318076

PATIENT

DRUGS (6)
  1. QUESTRAN [Suspect]
     Indication: DIARRHOEA
     Route: 048
     Dates: start: 20060116, end: 20060215
  2. BETASERC [Concomitant]
  3. FURESIS [Concomitant]
  4. PRIMASPAN [Concomitant]
  5. ISMOX [Concomitant]
  6. LIBRAX [Concomitant]

REACTIONS (2)
  - DIARRHOEA [None]
  - THROMBOCYTOPENIA [None]
